FAERS Safety Report 4689322-7 (Version None)
Quarter: 2005Q2

REPORT INFORMATION
  Report Type: 
  Country: None (occurrence: None)
  Receive Date: 20050608
  Receipt Date: 20050216
  Transmission Date: 20051028
  Serious: No
  Sender: FDA-Public Use
  Company Number: 2005-BP-02510BP

PATIENT
  Sex: Male

DRUGS (4)
  1. SPIRIVA [Suspect]
     Indication: ASBESTOSIS
     Dosage: 18 MCG (18 MCG, 1 IN 1D) IH
     Route: 055
     Dates: start: 20050201
  2. SPIRIVA [Suspect]
  3. CARDURA [Concomitant]
  4. SUNTHROID (LEVOTHYROXINE SODIUM) [Concomitant]

REACTIONS (1)
  - EXERCISE ELECTROCARDIOGRAM ABNORMAL [None]
